FAERS Safety Report 8374074-X (Version None)
Quarter: 2012Q2

REPORT INFORMATION
  Report Type: 
  Country: None (occurrence: None)
  Receive Date: 20120518
  Receipt Date: 20120518
  Transmission Date: 20120825
  Serious: Yes (Other)
  Sender: FDA-Public Use
  Company Number: None

PATIENT
  Sex: Female
  Weight: 103.4201 kg

DRUGS (5)
  1. PRADAXA [Suspect]
     Indication: HEART RATE IRREGULAR
     Dosage: 150 MG 2 X DAY
     Dates: start: 20111001
  2. PRADAXA [Suspect]
     Indication: HEART RATE IRREGULAR
     Dosage: 150 MG 2 X DAY
     Dates: start: 20120302
  3. LANTUS [Concomitant]
  4. SYNTHROID [Concomitant]
  5. HUMALOG [Concomitant]

REACTIONS (4)
  - VISION BLURRED [None]
  - EYE HAEMORRHAGE [None]
  - IMPAIRED DRIVING ABILITY [None]
  - VITREOUS FLOATERS [None]
